FAERS Safety Report 7946564-2 (Version None)
Quarter: 2011Q4

REPORT INFORMATION
  Report Type: 
  Country: None (occurrence: None)
  Receive Date: 20111129
  Receipt Date: 20111114
  Transmission Date: 20120403
  Serious: Yes (Death, Other)
  Sender: FDA-Public Use
  Company Number: FR-WATSON-2011-19338

PATIENT
  Age: 83 Year
  Sex: Male

DRUGS (5)
  1. PREDNISONE TAB [Suspect]
     Dosage: 80 MG, DAILY
     Route: 065
  2. METHYLPREDNISOLONE [Suspect]
     Dosage: 120 MG, DAILY (PULSED THERAPY)
     Route: 065
     Dates: start: 20010514
  3. PREDNISONE TAB [Suspect]
     Dosage: 25 MG, DAILY
     Route: 065
     Dates: start: 20010501
  4. PREDNISONE TAB [Suspect]
     Indication: TEMPORAL ARTERITIS
     Dosage: 40 MG, DAILY
     Route: 065
  5. METHYLPREDNISOLONE [Suspect]
     Indication: TEMPORAL ARTERITIS
     Dosage: 250 MG, DAILY ( 4 PULSES)
     Route: 065

REACTIONS (3)
  - NOCARDIOSIS [None]
  - ABSCESS [None]
  - NOCARDIA SEPSIS [None]
